FAERS Safety Report 16982593 (Version 2)
Quarter: 2019Q4

REPORT INFORMATION
  Report Type: Spontaneous
  Country: US (occurrence: US)
  Receive Date: 20191101
  Receipt Date: 20191108
  Transmission Date: 20200122
  Serious: Yes (Other)
  Sender: FDA-Public Use
  Company Number: US-TORRENT-00009431

PATIENT
  Age: 45 Year
  Sex: Male
  Weight: 99 kg

DRUGS (2)
  1. BACTRIM [Suspect]
     Active Substance: SULFAMETHOXAZOLE\TRIMETHOPRIM
     Indication: PROSTATITIS
     Dosage: UNKNOWN
  2. LEVOFLOXACIN. [Suspect]
     Active Substance: LEVOFLOXACIN
     Indication: RASH PUSTULAR
     Dosage: UNKNOWN

REACTIONS (2)
  - Diarrhoea [Recovered/Resolved]
  - Acute febrile neutrophilic dermatosis [Recovered/Resolved]
